FAERS Safety Report 9698860 (Version 2)
Quarter: 2013Q4

REPORT INFORMATION
  Report Type: Spontaneous
  Country: CA (occurrence: CA)
  Receive Date: 20131120
  Receipt Date: 20131120
  Transmission Date: 20140711
  Serious: Yes (Death)
  Sender: FDA-Public Use
  Company Number: CA-BANPHARM-20131877

PATIENT
  Age: 55 Year
  Sex: Male

DRUGS (5)
  1. AMANTADINE UNKNOWN PRODUCT [Suspect]
     Indication: PARKINSON^S DISEASE
     Dosage: 100 MG, TID,
  2. AMANTADINE UNKNOWN PRODUCT [Suspect]
     Dosage: 200 MG, SEVEN TIMES A DAY,
  3. LEVODOPA/CARBIDOPA [Suspect]
  4. ENTACAPONE [Suspect]
  5. QUETIAPINE [Suspect]

REACTIONS (12)
  - Medication error [Fatal]
  - Accidental overdose [Fatal]
  - Tremor [Fatal]
  - Paranoia [Fatal]
  - Hallucination [Fatal]
  - Agitation [Fatal]
  - Cardiac arrest [Fatal]
  - Rhabdomyolysis [Fatal]
  - Renal failure acute [Fatal]
  - Muscle rigidity [Fatal]
  - Brain injury [Fatal]
  - Neuroleptic malignant syndrome [Fatal]
